FAERS Safety Report 25453248 (Version 1)
Quarter: 2025Q2

REPORT INFORMATION
  Report Type: Spontaneous
  Country: CN (occurrence: CN)
  Receive Date: 20250618
  Receipt Date: 20250618
  Transmission Date: 20250717
  Serious: Yes (Other)
  Sender: BEIGENE
  Company Number: CN-BEIGENE-BGN-2025-009479

PATIENT
  Age: 66 Year
  Weight: 60 kg

DRUGS (7)
  1. TISLELIZUMAB [Suspect]
     Active Substance: TISLELIZUMAB
     Indication: Small cell lung cancer recurrent
  2. TISLELIZUMAB [Suspect]
     Active Substance: TISLELIZUMAB
     Route: 041
  3. TISLELIZUMAB [Suspect]
     Active Substance: TISLELIZUMAB
     Route: 041
  4. TISLELIZUMAB [Suspect]
     Active Substance: TISLELIZUMAB
  5. NEDAPLATIN [Suspect]
     Active Substance: NEDAPLATIN
     Indication: Small cell lung cancer recurrent
     Route: 041
  6. NEDAPLATIN [Suspect]
     Active Substance: NEDAPLATIN
  7. ETOPOSIDE [Concomitant]
     Active Substance: ETOPOSIDE
     Indication: Small cell lung cancer recurrent

REACTIONS (1)
  - Myelosuppression [Recovering/Resolving]
